FAERS Safety Report 6448372-0 (Version None)
Quarter: 2009Q4

REPORT INFORMATION
  Report Type: 
  Country: None (occurrence: None)
  Receive Date: 20091120
  Receipt Date: 20091106
  Transmission Date: 20100525
  Serious: Yes (Hospitalization, Other)
  Sender: FDA-Public Use
  Company Number: PHHY2009MX47539

PATIENT
  Sex: Female

DRUGS (3)
  1. TEGRETOL [Suspect]
     Indication: EPILEPSY
     Dosage: 45 ML (200 MG), DAILY
     Route: 048
     Dates: start: 19841026
  2. TEGRETOL [Suspect]
     Dosage: 30 ML/DAY
     Route: 048
     Dates: start: 20090726
  3. TEGRETOL [Suspect]
     Dosage: 30 ML (200 MG) PER DAY
     Dates: start: 20090905

REACTIONS (3)
  - CONVULSION [None]
  - DEPRESSION [None]
  - INTESTINAL ANGINA [None]
